FAERS Safety Report 21205815 (Version 1)
Quarter: 2022Q3

REPORT INFORMATION
  Report Type: Spontaneous
  Country: US (occurrence: US)
  Receive Date: 20220812
  Receipt Date: 20220812
  Transmission Date: 20221027
  Serious: No
  Sender: FDA-Public Use
  Company Number: US-ELI_LILLY_AND_COMPANY-US202208004240

PATIENT
  Age: 73 Year
  Sex: Female

DRUGS (1)
  1. FORTEO [Suspect]
     Active Substance: TERIPARATIDE
     Indication: Osteoporosis
     Dosage: UNK UNK, UNKNOWN
     Route: 065
     Dates: start: 20220627

REACTIONS (6)
  - Pain in extremity [Unknown]
  - Arthropod bite [Unknown]
  - Accidental underdose [Unknown]
  - Inappropriate schedule of product administration [Unknown]
  - Headache [Unknown]
  - Accidental overdose [Unknown]

NARRATIVE: CASE EVENT DATE: 20220627
